FAERS Safety Report 8361616-3 (Version None)
Quarter: 2012Q2

REPORT INFORMATION
  Report Type: 
  Country: None (occurrence: None)
  Receive Date: 20120515
  Receipt Date: 20120507
  Transmission Date: 20120825
  Serious: No
  Sender: FDA-Public Use
  Company Number: US-ASTRAZENECA-2012SE28391

PATIENT
  Age: 82 Year
  Sex: Female

DRUGS (4)
  1. SEROQUEL [Suspect]
     Route: 048
  2. SEROQUEL [Suspect]
     Route: 048
  3. SEROQUEL [Suspect]
     Indication: NERVOUSNESS
     Dosage: 25 MG 3 TABLETS IN THE MORNING AND 3 TABLETS IN THE EVENING
     Route: 048
  4. SEROQUEL [Suspect]
     Indication: ANXIETY
     Dosage: 25 MG 3 TABLETS IN THE MORNING AND 3 TABLETS IN THE EVENING
     Route: 048

REACTIONS (4)
  - OFF LABEL USE [None]
  - ANXIETY [None]
  - CATARACT [None]
  - DRY MOUTH [None]
